FAERS Safety Report 4840302-8 (Version None)
Quarter: 2005Q4

REPORT INFORMATION
  Report Type: 
  Country: None (occurrence: None)
  Receive Date: 20051021
  Receipt Date: 20050718
  Transmission Date: 20060501
  Serious: Yes (Other)
  Sender: FDA-Public Use
  Company Number: 2005108280

PATIENT
  Age: 59 Year
  Sex: Male
  Weight: 88.4514 kg

DRUGS (4)
  1. INSPRA [Suspect]
     Indication: CARDIAC FAILURE CONGESTIVE
     Dosage: ORAL
     Route: 048
     Dates: start: 20050301
  2. SPIRONOLACTONE [Concomitant]
  3. DIABETES MEDICATIONS (ANTI-DIABETICS) [Concomitant]
  4. ^CARDIAC^ MEDICATIONS (CARDIAC THERAPY) [Concomitant]

REACTIONS (1)
  - MOOD SWINGS [None]
